FAERS Safety Report 5204621-8 (Version None)
Quarter: 2007Q1

REPORT INFORMATION
  Report Type: 
  Country: None (occurrence: None)
  Receive Date: 20070110
  Receipt Date: 20060523
  Transmission Date: 20070707
  Serious: No
  Sender: FDA-Public Use
  Company Number: US-BRISTOL-MYERS SQUIBB COMPANY-13389531

PATIENT
  Age: 40 Year

DRUGS (1)
  1. ABILIFY [Suspect]

REACTIONS (3)
  - MOANING [None]
  - MOVEMENT DISORDER [None]
  - RESTLESSNESS [None]
